FAERS Safety Report 14189119 (Version 1)
Quarter: 2017Q4

REPORT INFORMATION
  Report Type: Report from Study
  Country: PT (occurrence: PT)
  Receive Date: 20171115
  Receipt Date: 20171115
  Transmission Date: 20180321
  Serious: Yes (Other)
  Sender: FDA-Public Use
  Company Number: PT-ROCHE-2017751

PATIENT
  Age: 50 Year
  Sex: Female

DRUGS (2)
  1. ROACTEMRA [Suspect]
     Active Substance: TOCILIZUMAB
     Indication: RHEUMATOID ARTHRITIS
     Route: 058
     Dates: start: 20170701, end: 20170919
  2. ROACTEMRA [Suspect]
     Active Substance: TOCILIZUMAB
     Route: 058
     Dates: start: 20171017

REACTIONS (5)
  - Drug ineffective [Unknown]
  - Clavicle fracture [Recovering/Resolving]
  - Fall [Unknown]
  - Therapeutic response decreased [Unknown]
  - Arthritis [Not Recovered/Not Resolved]
